FAERS Safety Report 6921794-7 (Version None)
Quarter: 2010Q3

REPORT INFORMATION
  Report Type: 
  Country: None (occurrence: None)
  Receive Date: 20100806
  Receipt Date: 20100423
  Transmission Date: 20110219
  Serious: No
  Sender: FDA-Public Use
  Company Number: 2010-05846

PATIENT
  Age: 59 Year
  Sex: Female
  Weight: 68 kg

DRUGS (1)
  1. RAPAFLO [Suspect]
     Indication: URINARY RETENTION
     Dosage: 1 CAPSUL, QPM, ORAL
     Route: 048
     Dates: start: 20100416, end: 20100422

REACTIONS (4)
  - CONDITION AGGRAVATED [None]
  - DRUG EFFECT INCREASED [None]
  - DRUG INEFFECTIVE [None]
  - DYSURIA [None]
